FAERS Safety Report 10328778 (Version 2)
Quarter: 2015Q1

REPORT INFORMATION
  Report Type: Other
  Country: US (occurrence: US)
  Receive Date: 20140721
  Receipt Date: 20150319
  Transmission Date: 20150720
  Serious: Yes (Hospitalization, Other)
  Sender: FDA-Public Use
  Company Number: US-GSKPPD-2014GSK003180

PATIENT
  Age: 68 Year
  Sex: Male

DRUGS (8)
  1. METOPROLOL [Concomitant]
     Active Substance: METOPROLOL
     Route: 048
  2. AVANDIA [Suspect]
     Active Substance: ROSIGLITAZONE MALEATE
     Indication: DIABETES MELLITUS
     Dosage: AVANDIA WAS NOT LISTED AMONG THE PATIENT^S DISCHARGE RECORDS.
     Route: 048
  3. AMIODARONE [Concomitant]
     Active Substance: AMIODARONE
     Route: 048
  4. LASIX [Concomitant]
     Active Substance: FUROSEMIDE
     Route: 048
  5. POTASSIUM [Concomitant]
     Active Substance: POTASSIUM
     Route: 048
  6. LISINOPRIL. [Concomitant]
     Active Substance: LISINOPRIL
     Route: 048
  7. COUMADIN [Concomitant]
     Active Substance: WARFARIN SODIUM
     Route: 048
  8. ASPIRIN. [Concomitant]
     Active Substance: ASPIRIN
     Route: 048

REACTIONS (1)
  - Cardiac failure congestive [Recovered/Resolved]

NARRATIVE: CASE EVENT DATE: 20101027
